FAERS Safety Report 8465589-4 (Version None)
Quarter: 2012Q2

REPORT INFORMATION
  Report Type: 
  Country: None (occurrence: None)
  Receive Date: 20120626
  Receipt Date: 20120621
  Transmission Date: 20120825
  Serious: No
  Sender: FDA-Public Use
  Company Number: US-PFIZER INC-2012150744

PATIENT
  Sex: Female

DRUGS (4)
  1. ACCURETIC [Concomitant]
  2. CELEBREX [Suspect]
  3. ARTHROTEC [Concomitant]
  4. LIPITOR [Suspect]

REACTIONS (1)
  - ABDOMINAL DISCOMFORT [None]
